FAERS Safety Report 8484688-4 (Version None)
Quarter: 2012Q3

REPORT INFORMATION
  Report Type: 
  Country: None (occurrence: None)
  Receive Date: 20120703
  Receipt Date: 20120503
  Transmission Date: 20120928
  Serious: No
  Sender: FDA-Public Use
  Company Number: US-TEVA-336342USA

PATIENT
  Sex: Female
  Weight: 90.8 kg

DRUGS (5)
  1. ESOMEPRAZOLE MAGNESIUM [Concomitant]
     Indication: DYSPEPSIA
     Dosage: 40 MILLIGRAM;
     Route: 048
  2. DOCUSATE SODIUM [Concomitant]
     Indication: CONSTIPATION
     Route: 048
     Dates: start: 20120201
  3. SODIUM OXYBATE [Concomitant]
     Indication: NARCOLEPSY
     Dosage: 6 GRAM;
     Route: 048
     Dates: start: 20100101
  4. NUVIGIL [Suspect]
     Indication: NARCOLEPSY
     Dosage: 150 MILLIGRAM;
     Route: 048
     Dates: start: 20120101
  5. AMITIZA [Concomitant]
     Indication: CONSTIPATION
     Dosage: 16 MILLIGRAM;
     Route: 048
     Dates: start: 20120201

REACTIONS (2)
  - CONSTIPATION [None]
  - NAUSEA [None]
